FAERS Safety Report 7009267-7 (Version None)
Quarter: 2010Q3

REPORT INFORMATION
  Report Type: 
  Country: None (occurrence: None)
  Receive Date: 20100923
  Receipt Date: 20100917
  Transmission Date: 20110219
  Serious: Yes (Hospitalization)
  Sender: FDA-Public Use
  Company Number: FR-BRISTOL-MYERS SQUIBB COMPANY-15295371

PATIENT
  Age: 75 Year
  Sex: Male

DRUGS (2)
  1. HYDREA [Suspect]
     Indication: MYELOFIBROSIS
     Route: 048
     Dates: start: 20090301, end: 20091106
  2. ALLOPURINOL [Suspect]
     Indication: MYELOFIBROSIS
     Dosage: 1 TABLET
     Route: 048
     Dates: start: 20090301, end: 20091021

REACTIONS (2)
  - DRUG RASH WITH EOSINOPHILIA AND SYSTEMIC SYMPTOMS [None]
  - INTERSTITIAL LUNG DISEASE [None]
